FAERS Safety Report 8455428-X (Version None)
Quarter: 2012Q2

REPORT INFORMATION
  Report Type: 
  Country: None (occurrence: None)
  Receive Date: 20120621
  Receipt Date: 20120612
  Transmission Date: 20120825
  Serious: Yes (Death, Other)
  Sender: FDA-Public Use
  Company Number: DE-JNJFOC-20120607163

PATIENT

DRUGS (22)
  1. GRANULOCYTE COLONY STIMULATING FACTOR [Suspect]
     Indication: ACUTE MYELOID LEUKAEMIA
     Dosage: INDUCTION 2; DAY 21-28
     Route: 065
  2. DAUNORUBICIN HCL [Suspect]
     Indication: ACUTE LYMPHOCYTIC LEUKAEMIA
     Dosage: INDUCTION 2; DAY 21-28
     Route: 065
  3. IDARUBICIN HCL [Suspect]
     Dosage: INDUCTION 1; DAY 1
     Route: 065
  4. ETOPOSIDE [Suspect]
     Indication: ACUTE LYMPHOCYTIC LEUKAEMIA
     Dosage: INDUCTION 1; DAY 1
     Route: 065
  5. CLADRIBINE [Suspect]
     Indication: ACUTE LYMPHOCYTIC LEUKAEMIA
     Dosage: BETWEEN DAYS 42-56; CONSOLIDATION PHASE
     Route: 042
  6. CLADRIBINE [Suspect]
     Indication: ACUTE MYELOID LEUKAEMIA
     Dosage: BETWEEN DAYS 42-56; CONSOLIDATION PHASE
     Route: 042
  7. CYTARABINE [Suspect]
     Indication: ACUTE LYMPHOCYTIC LEUKAEMIA
     Dosage: DAY 42-56 (0.5G/M2), CONSOLIDATION PHASE
     Route: 065
  8. CYTARABINE [Suspect]
     Dosage: INDUCTION 2; HIGH DOSE; DAYS 21-28
     Route: 065
  9. IDARUBICIN HCL [Suspect]
     Dosage: INDUCTION 1; DAY 1
     Route: 065
  10. ETOPOSIDE [Suspect]
     Indication: ACUTE MYELOID LEUKAEMIA
     Dosage: INDUCTION 1; DAY 1
     Route: 065
  11. IDARUBICIN HCL [Suspect]
     Indication: ACUTE MYELOID LEUKAEMIA
     Dosage: DAY 42-56; CONSOLIDATION PHASE
     Route: 065
  12. GRANULOCYTE COLONY STIMULATING FACTOR [Suspect]
     Indication: ACUTE LYMPHOCYTIC LEUKAEMIA
     Dosage: INDUCTION 2; DAY 21-28
     Route: 065
  13. DAUNORUBICIN HCL [Suspect]
     Indication: ACUTE MYELOID LEUKAEMIA
     Dosage: INDUCTION 2; DAY 21-28
     Route: 065
  14. CYTARABINE [Suspect]
     Indication: ACUTE MYELOID LEUKAEMIA
     Dosage: DAY 42-56 (0.5G/M2), CONSOLIDATION PHASE
     Route: 065
  15. CYTARABINE [Suspect]
     Dosage: INDUCTION 2; HIGH DOSE; DAYS 21-28
     Route: 065
  16. IDARUBICIN HCL [Suspect]
     Indication: ACUTE LYMPHOCYTIC LEUKAEMIA
     Dosage: DAY 42-56; CONSOLIDATION PHASE
     Route: 065
  17. FLUDARABINE PHOSPHATE [Suspect]
     Indication: ACUTE MYELOID LEUKAEMIA
     Dosage: INDUCTION 2; DAY 21-28
     Route: 065
  18. CYTARABINE [Suspect]
     Dosage: INDUCTION 1; DAY 1
     Route: 065
  19. CYTARABINE [Suspect]
     Dosage: INDUCTION 1; DAY 1
     Route: 065
  20. MITOXANTRONE [Suspect]
     Indication: ACUTE LYMPHOCYTIC LEUKAEMIA
     Dosage: INDUCTION 2; DAY 21-28
     Route: 065
  21. MITOXANTRONE [Suspect]
     Indication: ACUTE MYELOID LEUKAEMIA
     Dosage: INDUCTION 2; DAY 21-28
     Route: 065
  22. FLUDARABINE PHOSPHATE [Suspect]
     Indication: ACUTE LYMPHOCYTIC LEUKAEMIA
     Dosage: INDUCTION 2; DAY 21-28
     Route: 065

REACTIONS (10)
  - MUCOSAL INFLAMMATION [None]
  - NEUROTOXICITY [None]
  - ASPARTATE AMINOTRANSFERASE INCREASED [None]
  - ALANINE AMINOTRANSFERASE INCREASED [None]
  - CARDIAC FAILURE CONGESTIVE [None]
  - INFECTION [None]
  - LUNG DISORDER [None]
  - DEATH [None]
  - CARDIOTOXICITY [None]
  - ARRHYTHMIA [None]
